FAERS Safety Report 23191626 (Version 1)
Quarter: 2023Q4

REPORT INFORMATION
  Report Type: Report from Study
  Country: CA (occurrence: CA)
  Receive Date: 20231116
  Receipt Date: 20231116
  Transmission Date: 20240110
  Serious: Yes (Other)
  Sender: FDA-Public Use
  Company Number: CA-JNJFOC-20231134764

PATIENT
  Age: 33 Year
  Sex: Female

DRUGS (1)
  1. REMICADE [Suspect]
     Active Substance: INFLIXIMAB
     Indication: Crohn^s disease
     Route: 042
     Dates: start: 20230327

REACTIONS (4)
  - Drain placement [Unknown]
  - Fungal infection [Unknown]
  - Discharge [Unknown]
  - Skin irritation [Unknown]

NARRATIVE: CASE EVENT DATE: 20231106
